FAERS Safety Report 15450173 (Version 1)
Quarter: 2018Q4

REPORT INFORMATION
  Report Type: Spontaneous
  Country: US (occurrence: US)
  Receive Date: 20181001
  Receipt Date: 20181001
  Transmission Date: 20190204
  Serious: No
  Sender: FDA-Public Use
  Company Number: US-PFIZER INC-2018390250

PATIENT
  Age: 49 Year
  Sex: Female
  Weight: 84.17 kg

DRUGS (3)
  1. METHOTREXATE. [Concomitant]
     Active Substance: METHOTREXATE
     Dosage: 0.6 ML, WEEKLY
  2. HYDROCODONE [Suspect]
     Active Substance: HYDROCODONE
  3. IBUPROFEN. [Suspect]
     Active Substance: IBUPROFEN
     Dosage: UNK

REACTIONS (1)
  - Drug ineffective [Unknown]
